FAERS Safety Report 5825884-1 (Version None)
Quarter: 2008Q3

REPORT INFORMATION
  Report Type: 
  Country: None (occurrence: None)
  Receive Date: 20080723
  Receipt Date: 20080715
  Transmission Date: 20090109
  Serious: Yes (Other)
  Sender: FDA-Public Use
  Company Number: 2008018688

PATIENT
  Sex: Female

DRUGS (2)
  1. ZYRTEC [Suspect]
     Indication: HYPERSENSITIVITY
     Dosage: ORAL
     Route: 048
     Dates: start: 20080714
  2. PEPCID [Suspect]
     Indication: DRUG USE FOR UNKNOWN INDICATION
     Dosage: ORAL
     Route: 048

REACTIONS (4)
  - ABNORMAL DREAMS [None]
  - HALLUCINATION [None]
  - MOVEMENT DISORDER [None]
  - SCREAMING [None]
